FAERS Safety Report 25455748 (Version 1)
Quarter: 2025Q2

REPORT INFORMATION
  Report Type: Spontaneous
  Country: US (occurrence: US)
  Receive Date: 20250619
  Receipt Date: 20250619
  Transmission Date: 20250717
  Serious: No
  Sender: Steriscience PTE
  Company Number: US-STERISCIENCE B.V.-2025-ST-000728

PATIENT

DRUGS (2)
  1. MIDAZOLAM [Suspect]
     Active Substance: MIDAZOLAM
     Indication: Agitation
  2. DROPERIDOL [Suspect]
     Active Substance: DROPERIDOL
     Indication: Agitation

REACTIONS (2)
  - Hypotension [Unknown]
  - Off label use [Unknown]
